FAERS Safety Report 13875190 (Version 3)
Quarter: 2018Q1

REPORT INFORMATION
  Report Type: Report from Study
  Country: CA (occurrence: CA)
  Receive Date: 20170816
  Receipt Date: 20180201
  Transmission Date: 20180508
  Serious: Yes (Death, Hospitalization)
  Sender: FDA-Public Use
  Company Number: PHHY2016CA024021

PATIENT
  Age: 66 Year
  Sex: Male

DRUGS (2)
  1. SANDOSTATIN LAR DEPOT [Suspect]
     Active Substance: OCTREOTIDE ACETATE
     Indication: CARCINOID TUMOUR
     Dosage: 30 MG, QMO EVERY 4 WEEKS
     Route: 030
     Dates: start: 2010
  2. LYRICA [Concomitant]
     Active Substance: PREGABALIN
     Indication: ARTHRALGIA
     Route: 065

REACTIONS (14)
  - Bronchitis [Unknown]
  - Pain in extremity [Unknown]
  - Death [Fatal]
  - Blood pressure systolic increased [Unknown]
  - Weight decreased [Unknown]
  - Musculoskeletal pain [Unknown]
  - Back pain [Recovering/Resolving]
  - Arthralgia [Unknown]
  - Decreased appetite [Unknown]
  - Dyspnoea [Unknown]
  - Arthritis [Unknown]
  - Sleep disorder [Unknown]
  - Respiratory distress [Unknown]
  - Constipation [Recovering/Resolving]

NARRATIVE: CASE EVENT DATE: 20160218
